FAERS Safety Report 7563777-2 (Version None)
Quarter: 2011Q2

REPORT INFORMATION
  Report Type: 
  Country: None (occurrence: None)
  Receive Date: 20110622
  Receipt Date: 20110615
  Transmission Date: 20111010
  Serious: Yes (Disabling, Other)
  Sender: FDA-Public Use
  Company Number: US-B.I. PHARMACEUTICALS,INC./RIDGEFIELD-2011-BP-06235PF

PATIENT
  Sex: Female
  Weight: 53.06 kg

DRUGS (24)
  1. TRAZODONE HCL [Concomitant]
     Route: 048
  2. SPIRIVA [Suspect]
     Indication: ASTHMA
     Dosage: 18 MCG
     Route: 055
     Dates: start: 20060601
  3. DICYCLOMINE [Concomitant]
     Indication: ABDOMINAL PAIN UPPER
  4. DETROL LA [Concomitant]
     Indication: ABDOMINAL PAIN UPPER
  5. CIMETIDINE [Concomitant]
  6. HYDROCODONE [Concomitant]
     Indication: ABDOMINAL PAIN UPPER
  7. SPIRIVA [Suspect]
     Indication: CHRONIC OBSTRUCTIVE PULMONARY DISEASE
  8. PAXIL [Concomitant]
     Route: 048
  9. METHOTREXATE [Concomitant]
     Route: 058
  10. RANTIDINE [Concomitant]
     Route: 048
  11. LIDODERM [Concomitant]
     Indication: ABDOMINAL PAIN UPPER
  12. LYRICA [Suspect]
     Indication: FIBROMYALGIA
     Dosage: 225 MG
     Route: 048
     Dates: start: 20070101
  13. PRILOSEC [Concomitant]
  14. ASPIRIN [Concomitant]
     Route: 048
  15. DICYCLOMINE [Concomitant]
     Indication: DYSPNOEA
     Route: 048
  16. HYDROCODONE [Concomitant]
     Indication: DYSPNOEA
     Route: 048
  17. DETROL LA [Concomitant]
     Indication: DYSPNOEA
  18. LYRICA [Suspect]
     Indication: CARDIAC VALVE DISEASE
  19. VERPAMIL HCL [Concomitant]
     Dosage: 480 MG
     Route: 048
  20. FLUOXETINE HCL [Concomitant]
     Route: 048
  21. LIDODERM [Concomitant]
     Indication: DYSPNOEA
  22. XANAX [Suspect]
     Indication: ANXIETY
     Dosage: 3 MG
     Route: 048
  23. ESTRADIOL [Concomitant]
     Route: 048
  24. ZOCOR [Concomitant]
     Route: 048

REACTIONS (4)
  - MALAISE [None]
  - VITAMIN D DEFICIENCY [None]
  - CARDIAC VALVE DISEASE [None]
  - FIBROMYALGIA [None]
